FAERS Safety Report 9472329 (Version 1)
Quarter: 2013Q3

REPORT INFORMATION
  Report Type: Spontaneous
  Country: US (occurrence: None)
  Receive Date: 20130821
  Receipt Date: 20130821
  Transmission Date: 20140515
  Serious: Yes (Other)
  Sender: FDA-Public Use
  Company Number: None

PATIENT
  Age: 41 Year
  Sex: Female
  Weight: 65.77 kg

DRUGS (4)
  1. CYMBALTA [Suspect]
     Indication: NEUROPATHY PERIPHERAL
     Dosage: 30 TO 60 MG ONCE DAILY TAKEN BY MOUTH
     Route: 048
     Dates: start: 20130304, end: 20130820
  2. PLAQUENIL [Concomitant]
  3. VITAMIN D3 [Concomitant]
  4. FISH OIL [Concomitant]

REACTIONS (1)
  - Drug withdrawal syndrome [None]
